FAERS Safety Report 24758795 (Version 1)
Quarter: 2024Q4

REPORT INFORMATION
  Report Type: Other
  Country: US (occurrence: US)
  Receive Date: 20241220
  Receipt Date: 20241220
  Transmission Date: 20250114
  Serious: Yes (Hospitalization, Disabling)
  Sender: EMD SERONO INC
  Company Number: US-Merck Healthcare KGaA-2024065544

PATIENT
  Age: 48 Year
  Sex: Female

DRUGS (3)
  1. METFORMIN HYDROCHLORIDE [Suspect]
     Active Substance: METFORMIN HYDROCHLORIDE
     Indication: Type 2 diabetes mellitus
  2. LISINOPRIL [Suspect]
     Active Substance: LISINOPRIL
     Indication: Hypertension
  3. ROSUVASTATIN [Suspect]
     Active Substance: ROSUVASTATIN
     Indication: Hyperlipidaemia

REACTIONS (4)
  - Blindness [Unknown]
  - Encephalopathy [Recovered/Resolved]
  - Acute kidney injury [Unknown]
  - Lactic acidosis [Recovering/Resolving]
